FAERS Safety Report 9306211 (Version 1)
Quarter: 2013Q2

REPORT INFORMATION
  Report Type: Spontaneous
  Country: FR (occurrence: FR)
  Receive Date: 20130523
  Receipt Date: 20130523
  Transmission Date: 20140414
  Serious: Yes (Hospitalization)
  Sender: FDA-Public Use
  Company Number: FR-GLAXOSMITHKLINE-B0892490A

PATIENT
  Age: 86 Year
  Sex: Female

DRUGS (2)
  1. DERMOVAL [Suspect]
     Indication: ECZEMA NUMMULAR
     Dosage: 1UNIT PER DAY
     Route: 061
     Dates: start: 201212, end: 20130113
  2. PREVISCAN [Suspect]
     Indication: CARDIAC VALVE PROSTHESIS USER
     Route: 048
     Dates: end: 20130113

REACTIONS (2)
  - Post procedural haemorrhage [Recovered/Resolved]
  - International normalised ratio increased [Recovered/Resolved]
